FAERS Safety Report 12998996 (Version 1)
Quarter: 2016Q4

REPORT INFORMATION
  Report Type: Spontaneous
  Country: FI (occurrence: FI)
  Receive Date: 20161205
  Receipt Date: 20161205
  Transmission Date: 20170207
  Serious: Yes (Other)
  Sender: FDA-Public Use
  Company Number: FI-TEVA-713901ISR

PATIENT
  Sex: Female

DRUGS (4)
  1. MAREVAN [Concomitant]
     Active Substance: WARFARIN SODIUM
  2. ATORVASTATIN ORION [Concomitant]
     Active Substance: ATORVASTATIN CALCIUM
  3. BISOPROLOL RATIOPHARM [Suspect]
     Active Substance: BISOPROLOL
     Dosage: 2.5 MILLIGRAM DAILY;
     Route: 048
     Dates: start: 2015
  4. ATACAND [Concomitant]
     Active Substance: CANDESARTAN CILEXETIL

REACTIONS (7)
  - Dizziness [Unknown]
  - Product substitution issue [Unknown]
  - Hypersensitivity [Not Recovered/Not Resolved]
  - Arrhythmia [Unknown]
  - Sneezing [Not Recovered/Not Resolved]
  - Rhinorrhoea [Not Recovered/Not Resolved]
  - Loss of consciousness [Unknown]

NARRATIVE: CASE EVENT DATE: 2015
